FAERS Safety Report 17091466 (Version 1)
Quarter: 2019Q4

REPORT INFORMATION
  Report Type: Spontaneous
  Country: US (occurrence: US)
  Receive Date: 20191129
  Receipt Date: 20191129
  Transmission Date: 20200122
  Serious: No
  Sender: FDA-Public Use
  Company Number: US-TEVA-2019-US-1143658

PATIENT
  Age: 46 Year
  Sex: Female

DRUGS (1)
  1. MEXILETINE [Suspect]
     Active Substance: MEXILETINE
     Indication: NEUROPATHY PERIPHERAL
     Route: 065
     Dates: start: 20191113

REACTIONS (3)
  - Photosensitivity reaction [Recovered/Resolved]
  - Hyperacusis [Recovered/Resolved]
  - Dizziness [Recovered/Resolved]

NARRATIVE: CASE EVENT DATE: 20191116
